FAERS Safety Report 9583559 (Version 1)
Quarter: 2013Q4

REPORT INFORMATION
  Report Type: Spontaneous
  Country: US (occurrence: US)
  Receive Date: 20131002
  Receipt Date: 20131002
  Transmission Date: 20140711
  Serious: No
  Sender: FDA-Public Use
  Company Number: US-AMGEN-USASP2013048020

PATIENT
  Age: 57 Year
  Sex: Female
  Weight: 92.52 kg

DRUGS (11)
  1. ENBREL [Suspect]
     Indication: PRODUCT USED FOR UNKNOWN INDICATION
     Dosage: 50 MG, QWK
     Route: 058
  2. ZOCOR [Concomitant]
     Dosage: 10 MG, UNK
  3. FLEXERIL                           /00428402/ [Concomitant]
     Dosage: 10 MG, UNK
  4. FOSAMAX [Concomitant]
     Dosage: 10 MG, UNK
  5. ALDACTONE                          /00006201/ [Concomitant]
     Dosage: 25 MG, UNK
  6. DILANTIN                           /00017401/ [Concomitant]
     Dosage: 100 MG, UNK
  7. PHENOBARB                          /00023201/ [Concomitant]
     Dosage: 100 MG, UNK
  8. VITAMIN D3 [Concomitant]
     Dosage: 5000 UNIT, UNK
  9. FOLIC ACID [Concomitant]
     Dosage: UNK
  10. POTASSIUM [Concomitant]
     Dosage: UNK
  11. BABY ASPIRIN [Concomitant]
     Dosage: 81 MG, UNK

REACTIONS (3)
  - Pruritus [Unknown]
  - Rash erythematous [Unknown]
  - Swelling [Unknown]
